FAERS Safety Report 18582903 (Version 3)
Quarter: 2022Q1

REPORT INFORMATION
  Report Type: Spontaneous
  Country: US (occurrence: US)
  Receive Date: 20201204
  Receipt Date: 20220228
  Transmission Date: 20220423
  Serious: Yes (Other)
  Sender: FDA-Public Use
  Company Number: US-BIOCODEX2-202001439

PATIENT

DRUGS (7)
  1. DIACOMIT [Suspect]
     Active Substance: STIRIPENTOL
     Indication: Epilepsy
     Dosage: 250 MG, DILUTED IN 10ML WATER. HE RECEIVED 225MG (9 ML0 BY MOUTH TWICE DAILY
     Route: 048
     Dates: start: 20200814
  2. DIACOMIT [Suspect]
     Active Substance: STIRIPENTOL
     Dosage: 250MG 2, TWICE A DAY
     Route: 048
     Dates: start: 20200830
  3. DIACOMIT [Suspect]
     Active Substance: STIRIPENTOL
     Dosage: DIACOMIT 500MG, MIX WITH 10ML OF WATER, GIVE 6ML(300MG TOTAL) TWICE DAILY
     Route: 065
  4. CLOBAZAM [Concomitant]
     Active Substance: CLOBAZAM
     Indication: Severe myoclonic epilepsy of infancy
     Route: 065
  5. BANZEL [Concomitant]
     Active Substance: RUFINAMIDE
     Indication: Product used for unknown indication
     Route: 065
  6. VIGADRONE [Concomitant]
     Active Substance: VIGABATRIN
     Indication: Product used for unknown indication
     Route: 065
  7. FELBAMATE [Concomitant]
     Active Substance: FELBAMATE
     Indication: Product used for unknown indication
     Route: 065

REACTIONS (3)
  - Seizure [Unknown]
  - Fatigue [Unknown]
  - Product use in unapproved indication [Unknown]
